FAERS Safety Report 8244762-4 (Version None)
Quarter: 2012Q1

REPORT INFORMATION
  Report Type: 
  Country: None (occurrence: None)
  Receive Date: 20120329
  Receipt Date: 20110322
  Transmission Date: 20120608
  Serious: No
  Sender: FDA-Public Use
  Company Number: US-MYLANLABS-2011S1006189

PATIENT
  Age: 48 Year
  Sex: Female

DRUGS (2)
  1. FENTANYL-100 [Suspect]
     Indication: PAIN
     Dosage: Q48H
     Route: 062
  2. NEXIUM [Concomitant]
     Indication: GASTRIC DISORDER

REACTIONS (5)
  - MALAISE [None]
  - INCORRECT DOSE ADMINISTERED [None]
  - DRUG INEFFECTIVE [None]
  - HEADACHE [None]
  - DYSKINESIA [None]
